FAERS Safety Report 5646884-0 (Version None)
Quarter: 2008Q1

REPORT INFORMATION
  Report Type: 
  Country: None (occurrence: None)
  Receive Date: 20080229
  Receipt Date: 20080229
  Transmission Date: 20080703
  Serious: Yes (Other)
  Sender: FDA-Public Use
  Company Number: None

PATIENT
  Sex: Female
  Weight: 58.9676 kg

DRUGS (1)
  1. BUPROPION HCL [Suspect]
     Dosage: 150MG QAM PO
     Route: 048
     Dates: start: 20070917, end: 20071001

REACTIONS (2)
  - NAUSEA [None]
  - VOMITING [None]
